FAERS Safety Report 24688912 (Version 1)
Quarter: 2024Q4

REPORT INFORMATION
  Report Type: Spontaneous
  Country: US (occurrence: US)
  Receive Date: 20241203
  Receipt Date: 20241203
  Transmission Date: 20250114
  Serious: No
  Sender: BIOGEN
  Company Number: US-BIOGEN-2024BI01292209

PATIENT
  Age: 64 Year
  Sex: Female

DRUGS (1)
  1. TYSABRI [Suspect]
     Active Substance: NATALIZUMAB
     Indication: Multiple sclerosis
     Route: 050
     Dates: start: 20241126

REACTIONS (2)
  - Multiple sclerosis relapse [Not Recovered/Not Resolved]
  - Fall [Recovered/Resolved]

NARRATIVE: CASE EVENT DATE: 20241126
